FAERS Safety Report 4976224-1 (Version None)
Quarter: 2006Q2

REPORT INFORMATION
  Report Type: 
  Country: None (occurrence: None)
  Receive Date: 20060419
  Receipt Date: 20060407
  Transmission Date: 20061013
  Serious: Yes (Disabling, Other)
  Sender: FDA-Public Use
  Company Number: US-JNJFOC-20060202631

PATIENT
  Sex: Female

DRUGS (7)
  1. TOPAMAX [Suspect]
     Indication: MIGRAINE PROPHYLAXIS
     Route: 048
  2. IMITREX [Concomitant]
     Indication: MIGRAINE
  3. SINGULAIR [Concomitant]
     Indication: ASTHMA
  4. ADVAIR DISKUS 100/50 [Concomitant]
  5. ADVAIR DISKUS 100/50 [Concomitant]
     Indication: ASTHMA
  6. SYNTHROID [Concomitant]
  7. PROVENTIL [Concomitant]
     Indication: ASTHMA

REACTIONS (6)
  - ANGLE CLOSURE GLAUCOMA [None]
  - BLINDNESS [None]
  - HEADACHE [None]
  - HYPERTENSION [None]
  - VISION BLURRED [None]
  - VOMITING [None]
